FAERS Safety Report 10080476 (Version 1)
Quarter: 2014Q2

REPORT INFORMATION
  Report Type: Spontaneous
  Country: US (occurrence: US)
  Receive Date: 20140416
  Receipt Date: 20140416
  Transmission Date: 20141212
  Serious: No
  Sender: FDA-Public Use
  Company Number: US-B.I. PHARMACEUTICALS,INC./RIDGEFIELD-2014-BI-15477BP

PATIENT
  Age: 88 Year
  Sex: Female

DRUGS (6)
  1. COMBIVENT [Suspect]
     Indication: BRONCHIAL HYPERREACTIVITY
     Dosage: STRENGTH: 20 MCG / 100 MCG; DAILY DOSE: 80 MCG/400 MCG
     Route: 055
     Dates: start: 20140221
  2. VERAPAMIL [Concomitant]
     Indication: HYPERTENSION
     Route: 065
  3. LEVOTHYROXINE [Concomitant]
     Indication: HYPOTHYROIDISM
     Dosage: 0.1 MG
     Route: 048
  4. TRIAMT-HCTZ [Concomitant]
     Indication: HYPERTENSION
     Dosage: DOSE PER APPLICATION AND DAILY DOSE: 37/525MG
     Route: 048
  5. ATORVASTATIN [Concomitant]
     Indication: BLOOD CHOLESTEROL INCREASED
     Dosage: 10 MG
     Route: 048
  6. ASPIRIN [Concomitant]
     Indication: CARDIAC DISORDER
     Dosage: 81 MG
     Route: 048

REACTIONS (4)
  - Dyspnoea [Unknown]
  - Nasopharyngitis [Recovered/Resolved]
  - Cough [Unknown]
  - Off label use [Unknown]
